FAERS Safety Report 9967954 (Version 1)
Quarter: 2014Q1

REPORT INFORMATION
  Report Type: Report from Study
  Country: US (occurrence: US)
  Receive Date: 20140306
  Receipt Date: 20140306
  Transmission Date: 20141002
  Serious: No
  Sender: FDA-Public Use
  Company Number: US-ABBVIE-13P-163-1143728-00

PATIENT
  Age: 69 Year
  Sex: Female
  Weight: 89.44 kg

DRUGS (10)
  1. HUMIRA [Suspect]
     Indication: CROHN^S DISEASE
     Dates: start: 20130729
  2. ZOLPIDEM [Concomitant]
     Indication: INSOMNIA
     Dates: start: 2008
  3. VENLAFAXINE [Concomitant]
     Indication: DEPRESSION
  4. OXYBUTIN [Concomitant]
     Indication: URINARY INCONTINENCE
  5. CALCIUM [Concomitant]
     Indication: SUPPLEMENTATION THERAPY
  6. VITAMIN D [Concomitant]
     Indication: SUPPLEMENTATION THERAPY
  7. VITAMIN B 12 [Concomitant]
     Indication: SUPPLEMENTATION THERAPY
  8. GLUCOSAMINE [Concomitant]
     Indication: SUPPLEMENTATION THERAPY
  9. PROBIOTICS [Concomitant]
     Indication: SUPPLEMENTATION THERAPY
  10. TYLENOL [Concomitant]
     Indication: PAIN
     Dosage: PRN

REACTIONS (1)
  - Insomnia [Not Recovered/Not Resolved]
